FAERS Safety Report 8507782-8 (Version None)
Quarter: 2012Q3

REPORT INFORMATION
  Report Type: 
  Country: None (occurrence: None)
  Receive Date: 20120713
  Receipt Date: 20120709
  Transmission Date: 20120928
  Serious: Yes (Hospitalization)
  Sender: FDA-Public Use
  Company Number: PHHY2012CN056341

PATIENT
  Age: 69 Year
  Sex: Female

DRUGS (9)
  1. MIACALCIN [Suspect]
     Indication: OSTEOPOROSIS
     Dosage: 50 IU, QD
     Route: 058
  2. CALTRATE +D [Concomitant]
     Route: 048
  3. SIWEIPU [Concomitant]
  4. INDOMETHACIN [Concomitant]
     Route: 054
  5. ALPHA D3 [Concomitant]
     Route: 048
  6. METOCLOPRAMIDE [Concomitant]
  7. BONE PEPTIDE [Concomitant]
     Dosage: 2 AMPULES
     Route: 042
  8. SHENMAI [Concomitant]
     Dosage: 40 ML
  9. LIPOSOLUBLE VIT D [Concomitant]
     Dosage: 10 ML
     Route: 042

REACTIONS (6)
  - NAUSEA [None]
  - VOMITING [None]
  - PYREXIA [None]
  - RASH [None]
  - PLEURAL EFFUSION [None]
  - PULMONARY OEDEMA [None]
